FAERS Safety Report 7936458-0 (Version None)
Quarter: 2011Q4

REPORT INFORMATION
  Report Type: 
  Country: None (occurrence: None)
  Receive Date: 20111121
  Receipt Date: 20111108
  Transmission Date: 20120403
  Serious: Yes (Hospitalization, Other)
  Sender: FDA-Public Use
  Company Number: 2011P1009042

PATIENT
  Age: 48 Year
  Sex: Female

DRUGS (13)
  1. LAMOTRIGINE [Suspect]
     Indication: AFFECTIVE DISORDER
     Dosage: 50 MG 100 MG;QD
     Dates: end: 20110822
  2. LAMOTRIGINE [Suspect]
     Indication: DEPRESSION
     Dosage: 50 MG 100 MG;QD
     Dates: end: 20110822
  3. LAMOTRIGINE [Suspect]
     Indication: AFFECTIVE DISORDER
     Dosage: 50 MG 100 MG;QD
     Dates: start: 20110823, end: 20110825
  4. LAMOTRIGINE [Suspect]
     Indication: DEPRESSION
     Dosage: 50 MG 100 MG;QD
     Dates: start: 20110823, end: 20110825
  5. SYNTHROID [Concomitant]
  6. LAMOTRIGINE [Suspect]
     Indication: DEPRESSION
     Dosage: 100 MG;QD;PO
     Route: 048
     Dates: start: 20110826, end: 20110830
  7. LAMOTRIGINE [Suspect]
     Indication: AFFECTIVE DISORDER
     Dosage: 100 MG;QD;PO
     Route: 048
     Dates: start: 20110826, end: 20110830
  8. RAMIPRIL [Concomitant]
  9. SENNA PLUS [Concomitant]
  10. COREG [Concomitant]
  11. COUMADIN [Concomitant]
  12. COLACE [Concomitant]
  13. CELEXA [Concomitant]

REACTIONS (6)
  - DRUG RASH WITH EOSINOPHILIA AND SYSTEMIC SYMPTOMS [None]
  - STEVENS-JOHNSON SYNDROME [None]
  - NERVE INJURY [None]
  - SUNBURN [None]
  - TONGUE DISORDER [None]
  - PHARYNGEAL DISORDER [None]
